FAERS Safety Report 23090034 (Version 3)
Quarter: 2023Q4

REPORT INFORMATION
  Report Type: Spontaneous
  Country: PL (occurrence: None)
  Receive Date: 20231020
  Receipt Date: 20231121
  Transmission Date: 20240109
  Serious: Yes (Death, Life-Threatening, Hospitalization, Disabling, Other)
  Sender: FDA-Public Use
  Company Number: 2023A235410

PATIENT
  Age: 20994 Day
  Sex: Male
  Weight: 73 kg

DRUGS (1)
  1. CALQUENCE [Suspect]
     Active Substance: ACALABRUTINIB
     Indication: Chronic lymphocytic leukaemia
     Route: 048
     Dates: start: 20230301, end: 20230621

REACTIONS (5)
  - Neutropenia [Fatal]
  - Thrombocytopenia [Fatal]
  - Cardiopulmonary failure [Fatal]
  - Pseudomonal sepsis [Unknown]
  - Escherichia sepsis [Unknown]

NARRATIVE: CASE EVENT DATE: 20230621
